FAERS Safety Report 21042056 (Version 1)
Quarter: 2022Q3

REPORT INFORMATION
  Report Type: Spontaneous
  Country: JP (occurrence: JP)
  Receive Date: 20220705
  Receipt Date: 20220705
  Transmission Date: 20221027
  Serious: Yes (Other)
  Sender: FDA-Public Use
  Company Number: JP-ALLERGAN-2221094US

PATIENT
  Sex: Female

DRUGS (2)
  1. BOTOX [Suspect]
     Active Substance: ONABOTULINUMTOXINA
     Indication: Skin wrinkling
     Dosage: UNK, SINGLE
     Route: 030
     Dates: start: 20220625, end: 20220625
  2. BOTOX [Suspect]
     Active Substance: ONABOTULINUMTOXINA
     Dosage: UNK, SINGLE
     Route: 030

REACTIONS (9)
  - Depressed level of consciousness [Unknown]
  - Seizure [Unknown]
  - Chest discomfort [Unknown]
  - Off label use [Unknown]
  - Tremor [Unknown]
  - Asthenia [Unknown]
  - Dysphagia [Unknown]
  - Nausea [Unknown]
  - Hypoaesthesia [Unknown]
